FAERS Safety Report 12486951 (Version 1)
Quarter: 2016Q2

REPORT INFORMATION
  Report Type: Spontaneous
  Country: US (occurrence: None)
  Receive Date: 20160621
  Receipt Date: 20160621
  Transmission Date: 20160815
  Serious: Yes (Other)
  Sender: FDA-Public Use
  Company Number: None

PATIENT
  Age: 53 Year
  Sex: Female
  Weight: 52.16 kg

DRUGS (2)
  1. CELEBREX [Concomitant]
     Active Substance: CELECOXIB
  2. OMEPRAZOLE, 20 MG [Suspect]
     Active Substance: OMEPRAZOLE
     Indication: ABDOMINAL DISCOMFORT
     Route: 048

REACTIONS (5)
  - Abdominal pain [None]
  - Diarrhoea [None]
  - Product substitution issue [None]
  - Abdominal discomfort [None]
  - Drug intolerance [None]

NARRATIVE: CASE EVENT DATE: 20120101
